FAERS Safety Report 25220555 (Version 1)
Quarter: 2025Q2

REPORT INFORMATION
  Report Type: Spontaneous
  Country: CN (occurrence: CN)
  Receive Date: 20250421
  Receipt Date: 20250421
  Transmission Date: 20250716
  Serious: Yes (Hospitalization)
  Sender: MERCK SHARP & DOHME LLC
  Company Number: CN-009507513-2277186

PATIENT
  Age: 74 Year
  Sex: Male
  Weight: 60 kg

DRUGS (6)
  1. KEYTRUDA [Suspect]
     Active Substance: PEMBROLIZUMAB
     Indication: Hypopharyngeal cancer
     Route: 042
     Dates: start: 20250318, end: 20250318
  2. NEDAPLATIN [Suspect]
     Active Substance: NEDAPLATIN
     Indication: Hypopharyngeal cancer
     Route: 042
     Dates: start: 20250318, end: 20250319
  3. PACLITAXEL [Suspect]
     Active Substance: PACLITAXEL
     Indication: Hypopharyngeal cancer
     Route: 042
     Dates: start: 20250318, end: 20250318
  4. SODIUM CHLORIDE [Concomitant]
     Active Substance: SODIUM CHLORIDE
     Indication: Vehicle solution use
     Route: 042
     Dates: start: 20250318, end: 20250318
  5. SODIUM CHLORIDE [Concomitant]
     Active Substance: SODIUM CHLORIDE
     Indication: Vehicle solution use
     Route: 042
     Dates: start: 20250318, end: 20250319
  6. SODIUM CHLORIDE [Concomitant]
     Active Substance: SODIUM CHLORIDE
     Indication: Vehicle solution use
     Route: 042
     Dates: start: 20250318, end: 20250318

REACTIONS (2)
  - Platelet count decreased [Recovering/Resolving]
  - Product use issue [Unknown]

NARRATIVE: CASE EVENT DATE: 20250318
